FAERS Safety Report 22737678 (Version 5)
Quarter: 2023Q4

REPORT INFORMATION
  Report Type: Spontaneous
  Country: JP (occurrence: JP)
  Receive Date: 20230721
  Receipt Date: 20231218
  Transmission Date: 20240110
  Serious: Yes (Other)
  Sender: FDA-Public Use
  Company Number: JP-ONO-2023JP018495

PATIENT
  Age: 68 Year
  Sex: Male

DRUGS (3)
  1. YERVOY [Suspect]
     Active Substance: IPILIMUMAB
     Indication: Metastatic renal cell carcinoma
     Dosage: 4 COURSES OF IPILIMUMAB/NIVOLUMAB
     Route: 041
  2. OPDIVO [Suspect]
     Active Substance: NIVOLUMAB
     Indication: Metastatic renal cell carcinoma
     Dosage: 4 COURSES OF IPILIMUMAB/NIVOLUMAB
     Route: 041
  3. OPDIVO [Suspect]
     Active Substance: NIVOLUMAB
     Dosage: MONOTHERAPY WITH NIVOLUMAB WAS STARTED (THE MONOTHERAPY WAS ONGOING AT THE TIME OF THE REPORT)
     Route: 041

REACTIONS (2)
  - Immune-mediated renal disorder [Recovering/Resolving]
  - Infusion related reaction [Recovering/Resolving]
